FAERS Safety Report 7149688-5 (Version None)
Quarter: 2010Q4

REPORT INFORMATION
  Report Type: 
  Country: None (occurrence: None)
  Receive Date: 20101209
  Receipt Date: 20101126
  Transmission Date: 20110411
  Serious: Yes (Other)
  Sender: FDA-Public Use
  Company Number: GB-MYLANLABS-2010S1021718

PATIENT
  Age: 59 Year
  Sex: Female

DRUGS (4)
  1. RISPERIDONE [Suspect]
     Indication: SCHIZOPHRENIA
     Dates: start: 20091101
  2. RISPERIDONE [Suspect]
     Dates: start: 20080601
  3. INFLUENZA VIRUS [Suspect]
     Indication: INFLUENZA IMMUNISATION
     Dates: start: 20100901
  4. OMEPRAZOLE [Suspect]
     Indication: DYSPEPSIA
     Dates: start: 20100201

REACTIONS (3)
  - DRUG INTERACTION [None]
  - EXTRAPYRAMIDAL DISORDER [None]
  - FATIGUE [None]
